FAERS Safety Report 10330665 (Version 3)
Quarter: 2014Q3

REPORT INFORMATION
  Report Type: Spontaneous
  Country: JP (occurrence: JP)
  Receive Date: 20140722
  Receipt Date: 20140912
  Transmission Date: 20150326
  Serious: Yes (Hospitalization)
  Sender: FDA-Public Use
  Company Number: PHHY2014JP088560

PATIENT
  Age: 78 Year
  Sex: Male

DRUGS (6)
  1. AZULENE SODIUM SULFONATE [Suspect]
     Active Substance: SODIUM GUALENATE
     Route: 048
  2. DIOVAN [Suspect]
     Active Substance: VALSARTAN
     Indication: HYPERTENSION
     Dosage: UNK
     Route: 048
  3. ASPIRIN. [Suspect]
     Active Substance: ASPIRIN
     Route: 048
  4. SODIUM GUALENATE HYDRATE [Suspect]
     Active Substance: SODIUM GUALENATE MONOHYDRATE
  5. L GLUTAMINE [Suspect]
     Active Substance: GLUTAMINE
     Route: 048
  6. NIFEDIPINE. [Suspect]
     Active Substance: NIFEDIPINE
     Route: 048

REACTIONS (7)
  - Dyspnoea exertional [Recovered/Resolved]
  - Condition aggravated [Recovered/Resolved]
  - Drug hypersensitivity [Recovered/Resolved]
  - Inflammation [Recovered/Resolved]
  - Pleural effusion [Recovered/Resolved]
  - Eosinophil count increased [Recovered/Resolved]
  - Pyrexia [Recovered/Resolved]

NARRATIVE: CASE EVENT DATE: 201102
